FAERS Safety Report 9047448 (Version 1)
Quarter: 2013Q1

REPORT INFORMATION
  Report Type: Report from Study
  Country: US (occurrence: US)
  Receive Date: 20130201
  Receipt Date: 20130201
  Transmission Date: 20140127
  Serious: No
  Sender: FDA-Public Use
  Company Number: US-ABBOTT-12P-163-1028381-00

PATIENT
  Age: 59 Year
  Sex: Female

DRUGS (16)
  1. HUMIRA [Suspect]
     Indication: CROHN^S DISEASE
     Dosage: LOADING DOSE
     Dates: start: 20121207, end: 20121207
  2. HUMIRA [Suspect]
     Dosage: LOADING DOSE
  3. LISINOPRIL [Concomitant]
     Indication: BLOOD PRESSURE
     Dosage: 5MG DAILY
  4. PENTASA [Concomitant]
     Indication: CROHN^S DISEASE
  5. MERCAPTOPURINE [Concomitant]
     Indication: PRODUCT USED FOR UNKNOWN INDICATION
     Dosage: 50MG DAILY
  6. TRAZADONE [Concomitant]
     Indication: INSOMNIA
     Dosage: 100MG DAILY
  7. SABELLA [Concomitant]
     Indication: PAIN
     Dosage: 50MG DAILY
  8. OXYCONTIN [Concomitant]
     Indication: FIBROMYALGIA
     Dosage: 2 20MG PILLS DAILY
  9. OXYCONTIN [Concomitant]
     Indication: BACK PAIN
  10. ASA [Concomitant]
     Indication: PROPHYLAXIS
     Dosage: DAILY
  11. NEXIUM [Concomitant]
     Indication: GASTRIC DISORDER
     Dosage: 40MG DAILY
  12. MULTI-VITAMUIN [Concomitant]
     Indication: PRODUCT USED FOR UNKNOWN INDICATION
  13. VITAMIN B [Concomitant]
     Indication: PRODUCT USED FOR UNKNOWN INDICATION
  14. VITAMIN D [Concomitant]
     Indication: PRODUCT USED FOR UNKNOWN INDICATION
  15. GINGER ROOT [Concomitant]
     Indication: NAUSEA
  16. REMICADE [Concomitant]
     Indication: PRODUCT USED FOR UNKNOWN INDICATION
     Dosage: 25MG DAILY

REACTIONS (6)
  - Device malfunction [Recovering/Resolving]
  - Incorrect dose administered [Unknown]
  - Anxiety [Recovering/Resolving]
  - Injection site bruising [Recovering/Resolving]
  - Injection site pain [Recovering/Resolving]
  - Nausea [Recovering/Resolving]
